FAERS Safety Report 19608578 (Version 1)
Quarter: 2021Q3

REPORT INFORMATION
  Report Type: Spontaneous
  Country: US (occurrence: US)
  Receive Date: 20210724
  Receipt Date: 20210724
  Transmission Date: 20211014
  Serious: Yes (Life-Threatening, Disabling, Other)
  Sender: FDA-Public Use
  Company Number: None

PATIENT
  Age: 29 Year
  Sex: Male
  Weight: 69.75 kg

DRUGS (18)
  1. UP AND UP ALLERGY RELIEF (FEXOFENADINE HYDROCHLORIDE) [Suspect]
     Active Substance: FEXOFENADINE HYDROCHLORIDE
     Indication: HYPERSENSITIVITY
     Dosage: ?          QUANTITY:150 TABLET(S);?
     Route: 048
     Dates: start: 20210701, end: 20210707
  2. LOW DOSE NALTREXONE [Concomitant]
     Active Substance: NALTREXONE
  3. ALLAWAY [Concomitant]
  4. BONINE [Concomitant]
     Active Substance: MECLIZINE HYDROCHLORIDE
  5. FEXOFENADINE [Concomitant]
     Active Substance: FEXOFENADINE HYDROCHLORIDE
  6. EPIPEN [Concomitant]
     Active Substance: EPINEPHRINE
  7. NASACORT [Concomitant]
     Active Substance: TRIAMCINOLONE ACETONIDE
  8. LAMOTRIGINE. [Concomitant]
     Active Substance: LAMOTRIGINE
  9. DEXTROAMPHETAMINE. [Concomitant]
     Active Substance: DEXTROAMPHETAMINE
  10. CITALOPRAM [Concomitant]
     Active Substance: CITALOPRAM HYDROBROMIDE
  11. PROAIR HFA [Concomitant]
     Active Substance: ALBUTEROL SULFATE
  12. UP AND UP ALLERGY RELIEF (FEXOFENADINE HYDROCHLORIDE) [Suspect]
     Active Substance: FEXOFENADINE HYDROCHLORIDE
     Indication: ASTHMA
     Dosage: ?          QUANTITY:150 TABLET(S);?
     Route: 048
     Dates: start: 20210701, end: 20210707
  13. CANE [Concomitant]
  14. GASX [Concomitant]
  15. THERATEARS [Concomitant]
     Active Substance: CARBOXYMETHYLCELLULOSE SODIUM
  16. PANTOPRAZOLE [Concomitant]
     Active Substance: PANTOPRAZOLE
  17. AMLODIPINE [Concomitant]
     Active Substance: AMLODIPINE BESYLATE
  18. GLASSES [Concomitant]

REACTIONS (6)
  - Hypersensitivity [None]
  - Product substitution issue [None]
  - Therapeutic response decreased [None]
  - Product formulation issue [None]
  - Product quality issue [None]
  - Drug effect less than expected [None]

NARRATIVE: CASE EVENT DATE: 20210701
